FAERS Safety Report 7962742-0 (Version None)
Quarter: 2011Q4

REPORT INFORMATION
  Report Type: 
  Country: None (occurrence: None)
  Receive Date: 20111207
  Receipt Date: 20111125
  Transmission Date: 20120403
  Serious: Yes (Hospitalization)
  Sender: FDA-Public Use
  Company Number: DK-US-EMD SERONO, INC.-E2B_7098093

PATIENT
  Sex: Female
  Weight: 60 kg

DRUGS (4)
  1. VITAMIN TAB [Concomitant]
  2. REBIF [Suspect]
     Indication: MULTIPLE SCLEROSIS
     Route: 058
     Dates: start: 20110414, end: 20110516
  3. EPIDUO [Concomitant]
     Indication: ACNE
     Dates: start: 20110301, end: 20110601
  4. SUPPLEMENTS [Concomitant]

REACTIONS (1)
  - HEPATOTOXICITY [None]
